FAERS Safety Report 9967248 (Version 2)
Quarter: 2014Q1

REPORT INFORMATION
  Report Type: Report from Study
  Country: US (occurrence: US)
  Receive Date: 20140305
  Receipt Date: 20140305
  Transmission Date: 20141002
  Serious: No
  Sender: FDA-Public Use
  Company Number: US-ABBVIE-13P-163-1086322-00

PATIENT
  Age: 77 Year
  Sex: Male

DRUGS (12)
  1. HUMIRA [Suspect]
     Indication: CROHN^S DISEASE
     Dosage: SATURDAY
     Dates: start: 20130322
  2. 12 DIFFERENT KINDS OF UNKNOWN MEDS [Concomitant]
     Indication: PRODUCT USED FOR UNKNOWN INDICATION
  3. OMEPRAZOLE [Concomitant]
     Indication: GASTROOESOPHAGEAL REFLUX DISEASE
     Dosage: AT NIGHT
     Route: 048
  4. ATENOLOL [Concomitant]
     Indication: HYPERTENSION
     Dosage: 25MG DAILY
     Route: 048
  5. AMLODIPINE [Concomitant]
     Indication: HYPERTENSION
     Route: 048
  6. IMDUR [Concomitant]
     Indication: ANGINA PECTORIS
     Route: 048
  7. WELLBUTRIN [Concomitant]
     Indication: ANXIETY
     Dosage: 150MG DAILY
     Route: 048
  8. LASIX [Concomitant]
     Indication: RENAL IMPAIRMENT
     Dosage: 40MG DAILY
     Route: 048
  9. COUMADIN [Concomitant]
     Indication: CARDIAC DISORDER
     Dosage: AT NIGHT
     Route: 048
  10. LIPITOR [Concomitant]
     Indication: BLOOD CHOLESTEROL INCREASED
  11. ALBUTEROL HFA [Concomitant]
     Indication: EMPHYSEMA
  12. FLOMAX [Concomitant]
     Indication: SEASONAL ALLERGY
     Dosage: AT NIGHT
     Route: 045

REACTIONS (7)
  - Constipation [Not Recovered/Not Resolved]
  - Memory impairment [Not Recovered/Not Resolved]
  - Pruritus [Not Recovered/Not Resolved]
  - Abdominal pain upper [Not Recovered/Not Resolved]
  - Injection site pruritus [Not Recovered/Not Resolved]
  - Injection site swelling [Unknown]
  - Injection site nodule [Unknown]
